FAERS Safety Report 21279079 (Version 10)
Quarter: 2022Q4

REPORT INFORMATION
  Report Type: Spontaneous
  Country: GB (occurrence: GB)
  Receive Date: 20220901
  Receipt Date: 20221215
  Transmission Date: 20230112
  Serious: Yes (Hospitalization, Other)
  Sender: FDA-Public Use
  Company Number: None

PATIENT
  Age: 55 Year
  Sex: Male

DRUGS (60)
  1. OMEPRAZOLE [Suspect]
     Active Substance: OMEPRAZOLE
     Indication: Dyspepsia
     Dosage: UNK(TABLET UNCOATED)
     Route: 048
     Dates: start: 20110616
  2. OMEPRAZOLE [Suspect]
     Active Substance: OMEPRAZOLE
     Indication: Duodenal ulcer
     Dosage: UNK TABLET (UNCOATED TABLET,)
     Route: 048
     Dates: start: 20140116
  3. OMEPRAZOLE [Suspect]
     Active Substance: OMEPRAZOLE
     Dosage: UNK
     Route: 048
     Dates: start: 20140116
  4. QUETIAPINE FUMARATE [Suspect]
     Active Substance: QUETIAPINE FUMARATE
     Indication: Depression
     Dosage: UNK (FILM-COATED TABLET)
     Route: 048
     Dates: start: 20150826
  5. QUETIAPINE FUMARATE [Suspect]
     Active Substance: QUETIAPINE FUMARATE
     Dosage: UNK
     Route: 048
     Dates: start: 20150826
  6. BOCOCIZUMAB [Suspect]
     Active Substance: BOCOCIZUMAB
     Indication: Cardiovascular disorder
     Dosage: 150 MG, EVERY 2 WEEKS (SOLUTION FOR INJECTION, TABLET)
     Route: 058
     Dates: start: 20150908, end: 20161101
  7. BOCOCIZUMAB [Suspect]
     Active Substance: BOCOCIZUMAB
     Indication: Angina pectoris
     Dosage: 25 MILLIGRAM, BID, TABLET
     Route: 065
     Dates: start: 20110616
  8. BOCOCIZUMAB [Suspect]
     Active Substance: BOCOCIZUMAB
     Dosage: CUMULATIVE DOSAGE FORM-7703.5713 MG
     Route: 065
  9. BOCOCIZUMAB [Suspect]
     Active Substance: BOCOCIZUMAB
     Dosage: UNK (SOLUTION FOR INJECTION, TABLET)
     Route: 058
  10. BOCOCIZUMAB [Suspect]
     Active Substance: BOCOCIZUMAB
     Dosage: 50 MILLIGRAM, QD (1 DAY, 25 MG, BID), SOLUTION FOR INJECTION
     Route: 058
     Dates: start: 20110616
  11. CARVEDILOL [Suspect]
     Active Substance: CARVEDILOL
     Indication: Angina pectoris
     Dosage: 25 MG, BID (TABLET UNCOATED)
     Route: 048
     Dates: start: 20110616
  12. CARVEDILOL [Suspect]
     Active Substance: CARVEDILOL
     Dosage: 50 MILLIGRAM, QD (25MG, BID) (TABLET,UNCOATED)
     Route: 048
     Dates: start: 20110616
  13. CARVEDILOL [Suspect]
     Active Substance: CARVEDILOL
     Dosage: 25 MILLIGRAM, QD (1 DAY) TABLET (UNCOATED, ORAL)
     Route: 048
     Dates: start: 20110616
  14. FUROSEMIDE [Suspect]
     Active Substance: FUROSEMIDE
     Indication: Left ventricular dysfunction
     Dosage: 40 MG, QD
     Route: 048
     Dates: start: 20160402
  15. FUROSEMIDE [Suspect]
     Active Substance: FUROSEMIDE
     Indication: Pulmonary oedema
     Dosage: 40 MG, OD
     Route: 048
     Dates: start: 20160402
  16. FUROSEMIDE [Suspect]
     Active Substance: FUROSEMIDE
     Indication: Lung disorder
     Dosage: 40 MG, OD
     Route: 048
     Dates: start: 20160402
  17. FUROSEMIDE [Suspect]
     Active Substance: FUROSEMIDE
     Indication: Pleural effusion
     Dosage: 80 MILLIGRAM, QD TABLET (UNCOATED, ORAL)
     Route: 048
     Dates: start: 20160402
  18. FUROSEMIDE [Suspect]
     Active Substance: FUROSEMIDE
     Dosage: UNK, TABLET
     Route: 048
  19. ISOSORBIDE MONONITRATE [Suspect]
     Active Substance: ISOSORBIDE MONONITRATE
     Indication: Angina pectoris
     Dosage: 10 MG, QD, (ORAL FORMULATION: DURULE. MODIFIED-RELEASE CAPSULE, HARD)
     Route: 048
     Dates: start: 20160205
  20. IVABRADINE [Suspect]
     Active Substance: IVABRADINE
     Indication: Angina pectoris
     Dosage: 5 MILLIGRAM, QD TABLET (UNCOATED, ORAL)
     Route: 065
     Dates: start: 20150211
  21. IVABRADINE [Suspect]
     Active Substance: IVABRADINE
     Dosage: 5 MILLIGRAM, BID
     Route: 065
     Dates: start: 20150211
  22. IVABRADINE [Suspect]
     Active Substance: IVABRADINE
     Dosage: 10 MILLIGRAM, QD (UNCOATED ORAL)
     Route: 065
     Dates: start: 20150211
  23. IVABRADINE [Suspect]
     Active Substance: IVABRADINE
     Dosage: 5 MILLIGRAM, BID
     Route: 065
     Dates: start: 20150211
  24. IVABRADINE [Suspect]
     Active Substance: IVABRADINE
     Dosage: 10 MILLIGRAM, BID (UNCOATED ORAL)
     Route: 065
     Dates: start: 20150211
  25. IVABRADINE [Suspect]
     Active Substance: IVABRADINE
     Dosage: 5 MILLIGRAM TABLET (UNCOATED, ORAL)
     Route: 065
     Dates: start: 20150211
  26. RAMIPRIL [Suspect]
     Active Substance: RAMIPRIL
     Indication: Cardiac failure
     Dosage: 1.25 MG, QD TABLET (UNCOATED, ORAL)
     Route: 048
     Dates: start: 20130813, end: 20160629
  27. RAMIPRIL [Suspect]
     Active Substance: RAMIPRIL
     Dosage: 1 MILLIGRAM, QD TABLET (UNCOATED, ORAL)
     Route: 048
     Dates: start: 20130813, end: 20160629
  28. ASPIRIN [Concomitant]
     Active Substance: ASPIRIN
     Indication: Cardiovascular disorder
     Dosage: UNK TABLET (UNCOATED, ORAL)
     Route: 048
     Dates: start: 20130708
  29. ASPIRIN [Concomitant]
     Active Substance: ASPIRIN
     Dosage: UNK
     Route: 065
     Dates: start: 20130708
  30. ATORVASTATIN [Concomitant]
     Active Substance: ATORVASTATIN
     Indication: Cardiovascular disorder
     Dosage: UNK TABLET (UNCOATED, ORAL)
     Route: 048
     Dates: start: 20130708
  31. ATORVASTATIN [Concomitant]
     Active Substance: ATORVASTATIN
     Dosage: UNK
     Route: 065
     Dates: start: 20130708
  32. CODEINE PHOSPHATE [Concomitant]
     Active Substance: CODEINE PHOSPHATE
     Indication: Product used for unknown indication
     Dosage: UNK TABLET (UNCOATED, ORAL)
     Route: 048
  33. CODEINE PHOSPHATE [Concomitant]
     Active Substance: CODEINE PHOSPHATE
     Dosage: UNK
     Route: 065
  34. CODEINE PHOSPHATE [Concomitant]
     Active Substance: CODEINE PHOSPHATE
     Dosage: UNK TABLET (UNCOATED, ORAL)
     Route: 005
  35. ENTRESTO [Concomitant]
     Active Substance: SACUBITRIL\VALSARTAN
     Indication: Left ventricular dysfunction
     Dosage: UNK (49/51) TABLET (UNCOATED, ORAL)
     Route: 048
     Dates: start: 20160701
  36. ENTRESTO [Concomitant]
     Active Substance: SACUBITRIL\VALSARTAN
     Dosage: UNK (49/51) TABLET (UNCOATED, ORAL)
     Route: 048
     Dates: start: 20160601
  37. ENTRESTO [Concomitant]
     Active Substance: SACUBITRIL\VALSARTAN
     Dosage: UNK TABLET (UNCOATED, ORAL)
     Route: 048
     Dates: start: 20160701
  38. FOLIC ACID [Concomitant]
     Active Substance: FOLIC ACID
     Indication: Anaemia
     Dosage: UNK
     Route: 065
     Dates: start: 20131211
  39. FOLIC ACID [Concomitant]
     Active Substance: FOLIC ACID
     Dosage: UNK (TABLET, UNCOATED)
     Route: 048
     Dates: start: 20131211
  40. NITROGLYCERIN [Concomitant]
     Active Substance: NITROGLYCERIN
     Indication: Pain
     Dosage: UNK TABLET (UNCOATED, ORAL)
     Route: 048
     Dates: start: 20130902
  41. NITROGLYCERIN [Concomitant]
     Active Substance: NITROGLYCERIN
     Indication: Cardiovascular disorder
     Dosage: UNK
     Route: 048
  42. NITROGLYCERIN [Concomitant]
     Active Substance: NITROGLYCERIN
     Dosage: UNK, TABLET
     Route: 048
     Dates: start: 20130902
  43. ACETAMINOPHEN\CODEINE PHOSPHATE [Concomitant]
     Active Substance: ACETAMINOPHEN\CODEINE PHOSPHATE
     Indication: Pain in extremity
     Dosage: UNK
     Route: 065
     Dates: start: 20110616
  44. ACETAMINOPHEN\CODEINE PHOSPHATE [Concomitant]
     Active Substance: ACETAMINOPHEN\CODEINE PHOSPHATE
     Dosage: UNK (TABLET, UNCOATED)
     Route: 048
     Dates: start: 20110616
  45. BETAMETHASONE DIPROPIONATE\CLOTRIMAZOLE [Concomitant]
     Active Substance: BETAMETHASONE DIPROPIONATE\CLOTRIMAZOLE
     Indication: Psoriasis
     Dosage: UNK TABLET (UNCOATED, ORAL)
     Route: 065
     Dates: start: 20150626
  46. METHOTREXATE [Concomitant]
     Active Substance: METHOTREXATE
     Indication: Psoriasis
     Dosage: UNK (TABLET, UNCOATED)
     Route: 048
     Dates: start: 20150727
  47. METHOTREXATE [Concomitant]
     Active Substance: METHOTREXATE
     Dosage: UNK
     Route: 065
     Dates: start: 20150727
  48. ACETAMINOPHEN [Concomitant]
     Active Substance: ACETAMINOPHEN
     Indication: Pain in extremity
     Dosage: UNK TABLET (UNCOATED, ORAL)
     Route: 048
     Dates: start: 20110616
  49. ACETAMINOPHEN [Concomitant]
     Active Substance: ACETAMINOPHEN
     Indication: Pain in extremity
     Dosage: UNK, TABLET
     Route: 065
     Dates: start: 20160616
  50. ACETAMINOPHEN [Concomitant]
     Active Substance: ACETAMINOPHEN
     Dosage: UNK
     Route: 065
     Dates: start: 20160616
  51. ACETAMINOPHEN [Concomitant]
     Active Substance: ACETAMINOPHEN
     Dosage: UNK TABLET (UNCOATED, ORAL)
     Route: 048
     Dates: start: 20110616
  52. SACUBITRIL [Concomitant]
     Active Substance: SACUBITRIL
     Indication: Left ventricular dysfunction
     Dosage: UNK 49/51
     Route: 048
     Dates: start: 20160601
  53. SACUBITRIL [Concomitant]
     Active Substance: SACUBITRIL
     Dosage: UNK 49/51
     Route: 048
     Dates: start: 20160701
  54. SACUBITRIL [Concomitant]
     Active Substance: SACUBITRIL
     Dosage: UNK
     Route: 065
     Dates: start: 20160701
  55. SERTRALINE HYDROCHLORIDE [Concomitant]
     Active Substance: SERTRALINE HYDROCHLORIDE
     Indication: Depression
     Dosage: UNK TABLET (UNCOATED, ORAL)
     Route: 048
     Dates: start: 20110616
  56. SERTRALINE HYDROCHLORIDE [Concomitant]
     Active Substance: SERTRALINE HYDROCHLORIDE
     Dosage: UNK
     Route: 065
     Dates: start: 20110616
  57. SERTRALINE HYDROCHLORIDE [Concomitant]
     Active Substance: SERTRALINE HYDROCHLORIDE
     Dosage: UNK 49/51 TABLET (UNCOATED, ORAL)
     Route: 048
     Dates: start: 20160701
  58. SERTRALINE HYDROCHLORIDE [Concomitant]
     Active Substance: SERTRALINE HYDROCHLORIDE
     Dosage: UNK TABLET (UNCOATED, ORAL)
     Route: 048
     Dates: start: 20110816
  59. Quietiapine fumerate [Concomitant]
     Indication: Depression
     Dosage: UNK
     Route: 065
     Dates: start: 20150826
  60. BETAMETHASONE DIPROPIONATE\CLOTRIMAZOLE [Concomitant]
     Active Substance: BETAMETHASONE DIPROPIONATE\CLOTRIMAZOLE
     Indication: Psoriasis
     Dosage: UNK (CREAM)
     Route: 065
     Dates: start: 20150626

REACTIONS (15)
  - Anaemia [Unknown]
  - Angina pectoris [Unknown]
  - Angina pectoris [Unknown]
  - Cardiac failure [Unknown]
  - Contusion [Recovered/Resolved]
  - Contusion [Recovered/Resolved]
  - Drug interaction [Unknown]
  - Fluid retention [Unknown]
  - Hypotension [Recovered/Resolved]
  - Oedema peripheral [Not Recovered/Not Resolved]
  - Pulmonary oedema [Unknown]
  - Presyncope [Unknown]
  - Psoriasis [Unknown]
  - Ventricular dysfunction [Unknown]
  - Contusion [Recovered/Resolved]

NARRATIVE: CASE EVENT DATE: 20130919
